FAERS Safety Report 19193191 (Version 2)
Quarter: 2021Q2

REPORT INFORMATION
  Report Type: Spontaneous
  Country: CN (occurrence: CN)
  Receive Date: 20210429
  Receipt Date: 20210610
  Transmission Date: 20210717
  Serious: Yes (Hospitalization)
  Sender: FDA-Public Use
  Company Number: CN-BEIGENE USA INC-BGN-2021-001184

PATIENT

DRUGS (2)
  1. BRUKINSA [Suspect]
     Active Substance: ZANUBRUTINIB
     Dosage: 80 MILLIGRAM, BID, TOOK 1 WEEK AND STOPPED 1 WEEK ALTERNATELY
     Route: 048
     Dates: start: 202105, end: 202105
  2. BRUKINSA [Suspect]
     Active Substance: ZANUBRUTINIB
     Indication: CHRONIC LYMPHOCYTIC LEUKAEMIA
     Dosage: 160 MILLIGRAM, BID
     Route: 048
     Dates: start: 202104, end: 20210513

REACTIONS (2)
  - White blood cell count increased [Not Recovered/Not Resolved]
  - Lymphocyte count increased [Not Recovered/Not Resolved]

NARRATIVE: CASE EVENT DATE: 202104
